FAERS Safety Report 10128226 (Version 2)
Quarter: 2014Q2

REPORT INFORMATION
  Report Type: Spontaneous
  Country: US (occurrence: US)
  Receive Date: 20140428
  Receipt Date: 20140616
  Transmission Date: 20141212
  Serious: No
  Sender: FDA-Public Use
  Company Number: US-BIOGENIDEC-2014BI035721

PATIENT
  Age: 50 Year
  Sex: Female

DRUGS (2)
  1. TECFIDERA [Suspect]
     Indication: RELAPSING-REMITTING MULTIPLE SCLEROSIS
     Dates: start: 20131024
  2. TECFIDERA [Suspect]
     Indication: RELAPSING-REMITTING MULTIPLE SCLEROSIS
     Route: 048
     Dates: start: 201310, end: 20140409

REACTIONS (11)
  - Hypersensitivity [Recovered/Resolved]
  - Multiple sclerosis [Unknown]
  - Swelling [Unknown]
  - Palpitations [Unknown]
  - Flushing [Unknown]
  - Sinus disorder [Unknown]
  - Rhinorrhoea [Unknown]
  - Cognitive disorder [Unknown]
  - Ill-defined disorder [Not Recovered/Not Resolved]
  - Coordination abnormal [Not Recovered/Not Resolved]
  - Memory impairment [Not Recovered/Not Resolved]
